FAERS Safety Report 9631240 (Version 2)
Quarter: 2013Q4

REPORT INFORMATION
  Report Type: Spontaneous
  Country: IT (occurrence: IT)
  Receive Date: 20131018
  Receipt Date: 20131221
  Transmission Date: 20140711
  Serious: Yes (Hospitalization, Other)
  Sender: FDA-Public Use
  Company Number: PHHY2013IT116284

PATIENT
  Age: 37 Year
  Sex: Female

DRUGS (3)
  1. GILENYA [Suspect]
     Indication: MULTIPLE SCLEROSIS
     Dosage: 0.5 MG, QD
     Route: 048
     Dates: start: 20120220, end: 20130926
  2. PREGABALIN [Concomitant]
     Indication: DYSAESTHESIA
     Dosage: 300 MG, BID
     Route: 048
     Dates: start: 20130502
  3. DULOXETINE [Concomitant]
     Indication: NEURALGIA
     Dosage: 60 MG, QD
     Route: 048
     Dates: start: 20130502

REACTIONS (3)
  - Ischaemic stroke [Recovering/Resolving]
  - Central nervous system lesion [Unknown]
  - Vasospasm [Unknown]
